FAERS Safety Report 9308146 (Version 1)
Quarter: 2013Q2

REPORT INFORMATION
  Report Type: Spontaneous
  Country: US (occurrence: US)
  Receive Date: 20130524
  Receipt Date: 20130524
  Transmission Date: 20140414
  Serious: Yes (Other)
  Sender: FDA-Public Use
  Company Number: US-PFIZER INC-2013159175

PATIENT
  Age: 40 Year
  Sex: Female
  Weight: 91 kg

DRUGS (7)
  1. GABAPENTIN [Suspect]
     Indication: BACK PAIN
     Dosage: UNK
  2. GABAPENTIN [Suspect]
     Indication: SPONDYLITIS
  3. PREDNISONE [Suspect]
     Dosage: UNK
  4. LYRICA [Suspect]
     Indication: BACK PAIN
     Dosage: 100 MG, UNK
     Dates: start: 2005, end: 200809
  5. LYRICA [Suspect]
     Indication: SPONDYLITIS
  6. FENTANYL [Concomitant]
     Dosage: 75 MG, EVERY 72 HOURS
  7. METHOTREXATE [Concomitant]
     Dosage: UNK

REACTIONS (6)
  - Osteonecrosis [Unknown]
  - Back disorder [Unknown]
  - Drug ineffective [Unknown]
  - Activities of daily living impaired [Unknown]
  - Iron deficiency [Unknown]
  - Vitamin D deficiency [Unknown]
